FAERS Safety Report 7700035-7 (Version None)
Quarter: 2011Q3

REPORT INFORMATION
  Report Type: 
  Country: None (occurrence: None)
  Receive Date: 20110822
  Receipt Date: 20110808
  Transmission Date: 20111222
  Serious: Yes (Life-Threatening, Hospitalization, Other)
  Sender: FDA-Public Use
  Company Number: DE-ELI_LILLY_AND_COMPANY-DE201105008289

PATIENT
  Age: 14 Year
  Sex: Female
  Weight: 50 kg

DRUGS (5)
  1. METOPROLOL SUCCINATE [Concomitant]
  2. CYMBALTA [Suspect]
     Dosage: 30 MG, UNKNOWN
  3. LYRICA [Concomitant]
  4. AMITRIPTYLINE HCL [Concomitant]
  5. NAPROXEN [Concomitant]

REACTIONS (9)
  - INTENTIONAL DRUG MISUSE [None]
  - ENDOTRACHEAL INTUBATION [None]
  - SUICIDE ATTEMPT [None]
  - MIOSIS [None]
  - COMA [None]
  - BRADYCARDIA [None]
  - HYPOTENSION [None]
  - VOMITING [None]
  - OFF LABEL USE [None]
